FAERS Safety Report 16314368 (Version 1)
Quarter: 2019Q2

REPORT INFORMATION
  Report Type: Spontaneous
  Country: US (occurrence: US)
  Receive Date: 20190514
  Receipt Date: 20190514
  Transmission Date: 20190711
  Serious: No
  Sender: FDA-Public Use
  Company Number: None

PATIENT
  Age: 53 Year
  Sex: Female

DRUGS (22)
  1. CHOLESTYRAMINE 4GM PACKETS [Concomitant]
  2. CYANOCOBALAMIN 1000MCG [Concomitant]
  3. SUDAFED 12 HOUR [Concomitant]
     Active Substance: PSEUDOEPHEDRINE HYDROCHLORIDE
  4. LOSARTAN 100MG [Concomitant]
     Active Substance: LOSARTAN
  5. ESCITALOPRAM 10MG [Concomitant]
     Active Substance: ESCITALOPRAM OXALATE
  6. HYDROCHLORATHIAZIDE 25MG [Concomitant]
  7. PILOCARPINE 5MG [Concomitant]
  8. PREDNISONE 10MG [Concomitant]
     Active Substance: PREDNISONE
  9. VASCULERA 630MG [Concomitant]
  10. VICTOZA [Concomitant]
     Active Substance: LIRAGLUTIDE
  11. NOVOLOG [Concomitant]
     Active Substance: INSULIN ASPART
  12. OXYCODONE 20MG IR [Concomitant]
  13. LANSOPRAZOLE 30MG DR [Concomitant]
  14. MONTELUKAST [Concomitant]
     Active Substance: MONTELUKAST SODIUM
  15. REPATHA [Suspect]
     Active Substance: EVOLOCUMAB
     Indication: HYPERCHOLESTEROLAEMIA
     Dosage: ?          OTHER FREQUENCY:MONTHLY;?
     Route: 058
     Dates: start: 20190104, end: 20190420
  16. AMILORIDE 5MG [Concomitant]
  17. FLUCONAZOLE 200MG [Concomitant]
     Active Substance: FLUCONAZOLE
  18. RECLAST [Concomitant]
     Active Substance: ZOLEDRONIC ACID
  19. GABAPENTIN 800MG [Concomitant]
     Active Substance: GABAPENTIN
  20. FORTEO 200MCG [Concomitant]
  21. XELJANZ XR [Concomitant]
     Active Substance: TOFACITINIB CITRATE
  22. POTASSIUM CL 20MEQ [Concomitant]

REACTIONS (3)
  - Nasal congestion [None]
  - Neuropathy peripheral [None]
  - Pain [None]

NARRATIVE: CASE EVENT DATE: 20190420
